FAERS Safety Report 9259922 (Version 3)
Quarter: 2013Q4

REPORT INFORMATION
  Report Type: Report from Study
  Country: ES (occurrence: ES)
  Receive Date: 20130429
  Receipt Date: 20131220
  Transmission Date: 20140711
  Serious: Yes (Other)
  Sender: FDA-Public Use
  Company Number: ES-ROCHE-1218978

PATIENT
  Age: 45 Year
  Sex: Female

DRUGS (1)
  1. PERTUZUMAB [Suspect]
     Indication: BREAST CANCER
     Route: 065

REACTIONS (2)
  - Disease progression [Unknown]
  - Ejection fraction decreased [Not Recovered/Not Resolved]
